FAERS Safety Report 5502709-5 (Version None)
Quarter: 2007Q4

REPORT INFORMATION
  Report Type: 
  Country: None (occurrence: None)
  Receive Date: 20071031
  Receipt Date: 20071023
  Transmission Date: 20080405
  Serious: Yes (Other)
  Sender: FDA-Public Use
  Company Number: US-BAYER-200713129BCC

PATIENT
  Age: 19 Year
  Sex: Female
  Weight: 49 kg

DRUGS (3)
  1. ALEVE (CAPLET) [Suspect]
     Indication: HEADACHE
     Dosage: AS USED: 440/660 MG  UNIT DOSE: 220 MG
     Route: 048
     Dates: start: 20070927
  2. DEPO-PROVERA [Concomitant]
     Dates: start: 20050101, end: 20070301
  3. DEPO-PROVERA [Concomitant]
     Dates: start: 20071001

REACTIONS (3)
  - DEPRESSED MOOD [None]
  - SUICIDAL BEHAVIOUR [None]
  - SUICIDAL IDEATION [None]
